FAERS Safety Report 5034923-X (Version None)
Quarter: 2006Q2

REPORT INFORMATION
  Report Type: 
  Country: None (occurrence: None)
  Receive Date: 20060519
  Receipt Date: 20050805
  Transmission Date: 20061013
  Serious: Yes (Other)
  Sender: FDA-Public Use
  Company Number: 200516182US

PATIENT
  Age: 68 Year
  Sex: Female
  Weight: 84 kg

DRUGS (10)
  1. DDAVP [Suspect]
     Indication: HAEMORRHAGE
     Dosage: 23 UG QD INJ
     Route: 042
     Dates: start: 20050717, end: 20050718
  2. PANTOPRAZOLE [Concomitant]
  3. MORPHINE [Concomitant]
  4. ASCORBIC ACID [Concomitant]
  5. ZOLPIDEM TARTRATE [Concomitant]
  6. LIDOCAINE [Concomitant]
  7. PRILOCAINE [Concomitant]
  8. METHYLCELLULOSE [Concomitant]
  9. POLYSACCHARIDE-IRON COMPLEX [Concomitant]
  10. ATENOLOL [Concomitant]

REACTIONS (3)
  - DECREASED APPETITE [None]
  - HYPONATRAEMIA [None]
  - NAUSEA [None]
